FAERS Safety Report 4893399-3 (Version None)
Quarter: 2006Q1

REPORT INFORMATION
  Report Type: 
  Country: None (occurrence: None)
  Receive Date: 20060125
  Receipt Date: 20060125
  Transmission Date: 20060701
  Serious: Yes (Hospitalization, Other)
  Sender: FDA-Public Use
  Company Number: None

PATIENT
  Sex: Female
  Weight: 56.82 kg

DRUGS (2)
  1. CYCLOPHOSPHAMIDE [Suspect]
     Indication: BREAST CANCER
     Dosage: SEE IMAGE
     Dates: start: 20051227
  2. DOXORUBICIN [Suspect]
     Dosage: SEE IMAGE
     Dates: start: 20051227

REACTIONS (2)
  - DECREASED APPETITE [None]
  - RHABDOMYOLYSIS [None]
